FAERS Safety Report 12712499 (Version 1)
Quarter: 2016Q3

REPORT INFORMATION
  Report Type: Spontaneous
  Country: US (occurrence: US)
  Receive Date: 20160902
  Receipt Date: 20160902
  Transmission Date: 20161109
  Serious: No
  Sender: FDA-Public Use
  Company Number: US-PFIZER INC-2016410214

PATIENT
  Sex: Male

DRUGS (1)
  1. NICOTINE. [Suspect]
     Active Substance: NICOTINE
     Dosage: UNK

REACTIONS (8)
  - Irritability [Unknown]
  - Mood altered [Unknown]
  - Nausea [Unknown]
  - Flatulence [Unknown]
  - Paranoia [Unknown]
  - Withdrawal syndrome [Unknown]
  - Panic disorder [Unknown]
  - Depressed mood [Unknown]
